FAERS Safety Report 5035156-3 (Version None)
Quarter: 2006Q2

REPORT INFORMATION
  Report Type: 
  Country: None (occurrence: None)
  Receive Date: 20060627
  Receipt Date: 20060621
  Transmission Date: 20061013
  Serious: Yes (Life-Threatening)
  Sender: FDA-Public Use
  Company Number: PHEH2006US08122

PATIENT

DRUGS (1)
  1. ENABLEX [Suspect]
     Dosage: 7.5 MG, QD
     Route: 048

REACTIONS (3)
  - CONSTIPATION [None]
  - INTESTINAL OBSTRUCTION [None]
  - SURGERY [None]
